FAERS Safety Report 20611897 (Version 3)
Quarter: 2022Q2

REPORT INFORMATION
  Report Type: Spontaneous
  Country: US (occurrence: US)
  Receive Date: 20220318
  Receipt Date: 20220418
  Transmission Date: 20220721
  Serious: Yes (Other)
  Sender: FDA-Public Use
  Company Number: US-ORGANON-O2203USA001598

PATIENT
  Age: 24 Year
  Sex: Female
  Weight: 130.61 kg

DRUGS (2)
  1. NEXPLANON [Suspect]
     Active Substance: ETONOGESTREL
     Dosage: 1 IMPLANT OF 68 MG IN THE LEFT ARM FOR 3 YEARS; EXPECTED STOP DATE WAS MARCH 2025
     Route: 059
     Dates: start: 20220309, end: 20220309
  2. NEXPLANON [Concomitant]
     Active Substance: ETONOGESTREL
     Dosage: 1 DOSAGE FORM
     Route: 059
     Dates: end: 20220309

REACTIONS (2)
  - Device expulsion [Recovered/Resolved]
  - No adverse event [Unknown]

NARRATIVE: CASE EVENT DATE: 20220309
